FAERS Safety Report 12158603 (Version 1)
Quarter: 2016Q1

REPORT INFORMATION
  Report Type: Spontaneous
  Country: US (occurrence: US)
  Receive Date: 20160308
  Receipt Date: 20160308
  Transmission Date: 20160526
  Serious: No
  Sender: FDA-Public Use
  Company Number: US-JNJFOC-20160202541

PATIENT
  Sex: Male

DRUGS (2)
  1. SUDAFED OM [Suspect]
     Active Substance: OXYMETAZOLINE HYDROCHLORIDE
     Indication: NASOPHARYNGITIS
     Dosage: 2 SPRAYS; 3 DAYS ON, 3 DAYS OFF
     Route: 065
  2. SUDAFED OM [Suspect]
     Active Substance: OXYMETAZOLINE HYDROCHLORIDE
     Indication: SINUS CONGESTION
     Dosage: 2 SPRAYS; 3 DAYS ON, 3 DAYS OFF
     Route: 065

REACTIONS (2)
  - Therapeutic response unexpected [Unknown]
  - Expired product administered [Unknown]
